FAERS Safety Report 8386703-5 (Version None)
Quarter: 2012Q2

REPORT INFORMATION
  Report Type: 
  Country: None (occurrence: None)
  Receive Date: 20120525
  Receipt Date: 20120514
  Transmission Date: 20120825
  Serious: Yes (Death, Life-Threatening, Other)
  Sender: FDA-Public Use
  Company Number: GB-MYLANLABS-2012S1009870

PATIENT
  Age: 70 Year
  Sex: Female
  Weight: 80 kg

DRUGS (8)
  1. METHOTREXATE [Suspect]
     Indication: PSORIATIC ARTHROPATHY
     Route: 048
     Dates: end: 20120407
  2. CIPROFLOXACIN [Concomitant]
  3. CIPROFLOXACIN [Suspect]
     Indication: INFECTION
     Route: 048
     Dates: start: 20120329, end: 20120405
  4. RIFAMPICIN [Concomitant]
     Indication: PRODUCT USED FOR UNKNOWN INDICATION
  5. TEICOPLANIN [Concomitant]
     Indication: INFECTION
     Dates: end: 20120329
  6. ALLOPURINOL [Concomitant]
     Indication: PRODUCT USED FOR UNKNOWN INDICATION
  7. GENTAMICIN [Concomitant]
     Indication: PRODUCT USED FOR UNKNOWN INDICATION
     Dates: end: 20120329
  8. PIPERACILLIN/TAZOBACTAM [Suspect]
     Indication: INFECTION
     Route: 042
     Dates: start: 20120405

REACTIONS (6)
  - STEVENS-JOHNSON SYNDROME [None]
  - SEPSIS [None]
  - RENAL FAILURE ACUTE [None]
  - PANCYTOPENIA [None]
  - POTENTIATING DRUG INTERACTION [None]
  - LIVER FUNCTION TEST ABNORMAL [None]
